FAERS Safety Report 4559100-8 (Version None)
Quarter: 2005Q1

REPORT INFORMATION
  Report Type: 
  Country: None (occurrence: None)
  Receive Date: 20050120
  Receipt Date: 20050120
  Transmission Date: 20050727
  Serious: Yes (Hospitalization)
  Sender: FDA-Public Use
  Company Number: None

PATIENT
  Age: 51 Year
  Sex: Female
  Weight: 75.5 kg

DRUGS (9)
  1. PHENYTOIN [Suspect]
     Indication: CONVULSION
     Dosage: 350 MG PO DAILY CHRONIC
     Route: 048
  2. FLUVOXAMINE [Suspect]
     Indication: BIPOLAR DISORDER
     Dosage: 100 MG PO DAILY CHRONIC
     Route: 048
  3. LUVOX [Concomitant]
  4. DITROPON [Concomitant]
  5. VIOXX [Concomitant]
  6. LAMICTAL [Concomitant]
  7. DILANTIN [Concomitant]
  8. ABILIFY [Concomitant]
  9. COUMADIN [Concomitant]

REACTIONS (4)
  - ANTICONVULSANT TOXICITY [None]
  - ASTHENIA [None]
  - COORDINATION ABNORMAL [None]
  - FALL [None]
